FAERS Safety Report 8268447-3 (Version None)
Quarter: 2012Q1

REPORT INFORMATION
  Report Type: 
  Country: None (occurrence: None)
  Receive Date: 20120327
  Receipt Date: 20090710
  Transmission Date: 20120608
  Serious: Yes (Other)
  Sender: FDA-Public Use
  Company Number: PHEH2009US06270

PATIENT
  Sex: Male
  Weight: 63 kg

DRUGS (2)
  1. GLEEVEC [Suspect]
     Indication: LEUKAEMIA
     Dosage: 400;200 MG/DAY, ORAL
     Route: 048
     Dates: start: 20081224, end: 20090401
  2. GLEEVEC [Suspect]
     Indication: LEUKAEMIA
     Dosage: 400;200 MG/DAY, ORAL
     Route: 048
     Dates: start: 20090610

REACTIONS (5)
  - HAEMOGLOBIN DECREASED [None]
  - FREQUENT BOWEL MOVEMENTS [None]
  - ABDOMINAL DISCOMFORT [None]
  - OEDEMA PERIPHERAL [None]
  - MALAISE [None]
